FAERS Safety Report 4558430-3 (Version None)
Quarter: 2005Q1

REPORT INFORMATION
  Report Type: 
  Country: None (occurrence: None)
  Receive Date: 20050108
  Receipt Date: 20041006
  Transmission Date: 20050727
  Serious: Yes (Other)
  Sender: FDA-Public Use
  Company Number: 2004UW20952

PATIENT
  Age: 66 Year
  Sex: Female

DRUGS (4)
  1. CRESTOR [Suspect]
     Dosage: 10 MG PO
     Route: 048
     Dates: start: 20040701, end: 20040901
  2. PRILOSEC [Concomitant]
  3. TOPROL-XL [Concomitant]
  4. ZOLOFT [Concomitant]

REACTIONS (3)
  - INSOMNIA [None]
  - MUSCLE SPASMS [None]
  - SWELLING [None]
